FAERS Safety Report 4765642-2 (Version None)
Quarter: 2005Q3

REPORT INFORMATION
  Report Type: 
  Country: None (occurrence: None)
  Receive Date: 20050907
  Receipt Date: 20050825
  Transmission Date: 20060218
  Serious: Yes (Disabling, Other)
  Sender: FDA-Public Use
  Company Number: S05-UKI-03163-01

PATIENT
  Age: 37 Year
  Sex: Male

DRUGS (9)
  1. CAMPRAL [Suspect]
     Indication: ALCOHOLISM
     Dosage: 666 MG TID PO
     Route: 048
     Dates: start: 20050622, end: 20050804
  2. DIAZEPAM [Concomitant]
  3. DIHYDROCODEINE [Concomitant]
  4. VENLAFAXINE [Concomitant]
  5. OLANZAPINE [Concomitant]
  6. RISPERIDONE [Concomitant]
  7. ALBUTEROL SULFATE HFA [Concomitant]
  8. CHLORDIAZEPOXIDE [Concomitant]
  9. NITRAZEPAM [Concomitant]

REACTIONS (3)
  - ABNORMAL BEHAVIOUR [None]
  - ENURESIS [None]
  - SLEEP WALKING [None]
